FAERS Safety Report 9380054 (Version 3)
Quarter: 2013Q3

REPORT INFORMATION
  Report Type: Spontaneous
  Country: US (occurrence: US)
  Receive Date: 20130702
  Receipt Date: 20130719
  Transmission Date: 20140515
  Serious: No
  Sender: FDA-Public Use
  Company Number: US-PFIZER INC-2013194143

PATIENT
  Age: 40 Year
  Sex: Female
  Weight: 65.76 kg

DRUGS (3)
  1. ENBREL [Suspect]
     Indication: RHEUMATOID ARTHRITIS
     Dosage: 50 MG, WEEKLY
     Route: 058
     Dates: start: 201305
  2. METHOTREXATE SODIUM [Suspect]
     Dosage: UNK
  3. PLAQUENIL [Concomitant]
     Dosage: UNK

REACTIONS (8)
  - Fatigue [Unknown]
  - Sedation [Unknown]
  - Malaise [Unknown]
  - Injection site reaction [Not Recovered/Not Resolved]
  - Injection site pruritus [Not Recovered/Not Resolved]
  - Injection site warmth [Not Recovered/Not Resolved]
  - Injection site discolouration [Not Recovered/Not Resolved]
  - Injection site erythema [Not Recovered/Not Resolved]
